FAERS Safety Report 7177086-7 (Version None)
Quarter: 2010Q4

REPORT INFORMATION
  Report Type: 
  Country: None (occurrence: None)
  Receive Date: 20101216
  Receipt Date: 20101216
  Transmission Date: 20110411
  Serious: Yes (Life-Threatening, Hospitalization)
  Sender: FDA-Public Use
  Company Number: None

PATIENT
  Sex: Female
  Weight: 69.8539 kg

DRUGS (2)
  1. GAMMAGARD LIQUID [Suspect]
     Indication: STIFF-MAN SYNDROME
     Dosage: 5X/WEEK IV DRIP
     Route: 041
     Dates: start: 20101018, end: 20101018
  2. GAMMAGARD LIQUID [Suspect]
     Indication: STIFF-MAN SYNDROME
     Dosage: 5X/WEEK IV DRIP
     Route: 041
     Dates: start: 20100119, end: 20101019

REACTIONS (9)
  - ASTHENIA [None]
  - HEADACHE [None]
  - INCORRECT DRUG ADMINISTRATION RATE [None]
  - MENINGITIS ASEPTIC [None]
  - MENINGITIS CHEMICAL [None]
  - MOBILITY DECREASED [None]
  - PYREXIA [None]
  - SOMNOLENCE [None]
  - WRONG TECHNIQUE IN DRUG USAGE PROCESS [None]
